FAERS Safety Report 4884728-5 (Version None)
Quarter: 2005Q4

REPORT INFORMATION
  Report Type: 
  Country: None (occurrence: None)
  Receive Date: 20051201
  Receipt Date: 20050903
  Transmission Date: 20060501
  Serious: No
  Sender: FDA-Public Use
  Company Number: 2005PV001738

PATIENT
  Age: 67 Year
  Sex: Female
  Weight: 90.7194 kg

DRUGS (4)
  1. BYETTA [Suspect]
     Indication: DIABETES MELLITUS NON-INSULIN-DEPENDENT
     Dosage: 5 MCG; BID; SC
     Route: 058
     Dates: start: 20050901
  2. GLUCOPHAGE XR [Concomitant]
  3. AMARYL [Concomitant]
  4. AMARYL [Concomitant]

REACTIONS (4)
  - FATIGUE [None]
  - FEELING JITTERY [None]
  - NAUSEA [None]
  - VOMITING [None]
